FAERS Safety Report 4753564-2 (Version None)
Quarter: 2005Q3

REPORT INFORMATION
  Report Type: 
  Country: None (occurrence: None)
  Receive Date: 20050826
  Receipt Date: 20050824
  Transmission Date: 20060218
  Serious: Yes (Death)
  Sender: FDA-Public Use
  Company Number: PHBS2005NO12367

PATIENT
  Age: 34 Year
  Sex: Female

DRUGS (1)
  1. LEPONEX [Suspect]
     Indication: SCHIZOPHRENIA
     Dosage: 100 MG, QID
     Route: 048

REACTIONS (5)
  - GASTROENTERITIS ESCHERICHIA COLI [None]
  - NAUSEA [None]
  - PERITONITIS [None]
  - STAPHYLOCOCCAL INFECTION [None]
  - VOMITING [None]
